FAERS Safety Report 4803007-5 (Version None)
Quarter: 2005Q4

REPORT INFORMATION
  Report Type: 
  Country: None (occurrence: None)
  Receive Date: 20051017
  Receipt Date: 20051017
  Transmission Date: 20060501
  Serious: Yes (Hospitalization)
  Sender: FDA-Public Use
  Company Number: None

PATIENT
  Age: 62 Year
  Sex: Male

DRUGS (10)
  1. ZOSYN [Suspect]
     Indication: URINARY TRACT INFECTION
     Dosage: 3.375 MG IV Q6H
     Route: 042
     Dates: start: 20050703, end: 20050706
  2. CIPRO [Suspect]
     Indication: URINARY TRACT INFECTION
     Dosage: 400 MG IV Q 12 H
     Route: 042
     Dates: start: 20050703, end: 20050712
  3. ACETAMINOPHEN SUPP [Concomitant]
  4. ALBUTEROL 0.083% INHAL [Concomitant]
  5. CLINDAMYCIN [Concomitant]
  6. ENOXAPARIN SODIUM [Concomitant]
  7. HUMULIN R [Concomitant]
  8. IPRATROPIUM BR 0.02% INH [Concomitant]
  9. NA BIPHOSPHATE AND NA PO4 ENEMA [Concomitant]
  10. PANTOPRAZOLE INJ [Concomitant]

REACTIONS (1)
  - PANCYTOPENIA [None]
